FAERS Safety Report 20596477 (Version 2)
Quarter: 2022Q1

REPORT INFORMATION
  Report Type: Spontaneous
  Country: JP (occurrence: JP)
  Receive Date: 20220315
  Receipt Date: 20220329
  Transmission Date: 20220424
  Serious: Yes (Hospitalization)
  Sender: FDA-Public Use
  Company Number: JP-PFIZER INC-202200185948

PATIENT
  Age: 72 Year
  Sex: Male

DRUGS (1)
  1. SUTENT [Suspect]
     Active Substance: SUNITINIB MALATE
     Indication: Renal cell carcinoma
     Dosage: 50 MG, DAILY (2 WEEKS OF ADMINISTRATION AND 1 WEEK OF WITHDRAWAL)
     Route: 048
     Dates: start: 20220128, end: 20220203

REACTIONS (1)
  - Vasodilatation [Recovered/Resolved]

NARRATIVE: CASE EVENT DATE: 20220303
